FAERS Safety Report 7426290-9 (Version None)
Quarter: 2011Q2

REPORT INFORMATION
  Report Type: 
  Country: None (occurrence: None)
  Receive Date: 20110420
  Receipt Date: 20110412
  Transmission Date: 20111010
  Serious: Yes (Hospitalization, Other)
  Sender: FDA-Public Use
  Company Number: A0920088A

PATIENT
  Age: 52 Year
  Sex: Female
  Weight: 103.6 kg

DRUGS (2)
  1. PROMACTA [Suspect]
     Indication: IDIOPATHIC THROMBOCYTOPENIC PURPURA
     Dosage: 50MG PER DAY
     Route: 048
     Dates: start: 20110301, end: 20110404
  2. BLOOD PRESSURE MEDICATION [Concomitant]

REACTIONS (9)
  - HYPOAESTHESIA [None]
  - NUCLEAR MAGNETIC RESONANCE IMAGING BRAIN [None]
  - TRANSIENT ISCHAEMIC ATTACK [None]
  - CEREBROVASCULAR ACCIDENT [None]
  - ELECTROCARDIOGRAM [None]
  - VISUAL IMPAIRMENT [None]
  - DIZZINESS [None]
  - FLUSHING [None]
  - ECHOCARDIOGRAM [None]
